FAERS Safety Report 9668081 (Version 2)
Quarter: 2013Q4

REPORT INFORMATION
  Report Type: Spontaneous
  Country: IT (occurrence: IT)
  Receive Date: 20131104
  Receipt Date: 20131119
  Transmission Date: 20140711
  Serious: Yes (Hospitalization)
  Sender: FDA-Public Use
  Company Number: PHHY2013IT120513

PATIENT
  Age: 84 Year
  Sex: Female

DRUGS (11)
  1. LEVOFLOXACIN [Suspect]
     Indication: LUNG INFECTION
     Dosage: 500 MG, QD
     Route: 048
     Dates: start: 20130914, end: 20130924
  2. MICARDIS [Concomitant]
     Dosage: 40 MG
     Route: 048
     Dates: start: 20120101, end: 20131010
  3. KEPPRA [Concomitant]
     Dosage: 500 MG
     Dates: start: 20120101, end: 20131010
  4. CATAPRESS TTS [Concomitant]
     Dosage: 2.5 MG
     Dates: start: 20120101, end: 20131010
  5. TIKLID [Concomitant]
     Dosage: 250 MG
     Dates: start: 20120101, end: 20131010
  6. FOSTER [Concomitant]
     Dates: start: 20120101, end: 20131010
  7. ZANEDIP [Concomitant]
     Dosage: 1 MG
     Dates: start: 20120101, end: 20131010
  8. LEXOTAN [Concomitant]
     Dosage: 2.5 MG/ML
     Dates: start: 20120101, end: 20131010
  9. ENALAPRIL [Concomitant]
     Dates: start: 20120101, end: 20131010
  10. OMEPRAZOLE [Concomitant]
     Dates: start: 20120101, end: 20131010
  11. ALLOPURINOL [Concomitant]
     Dates: start: 20120101, end: 20131010

REACTIONS (1)
  - Acute generalised exanthematous pustulosis [Recovered/Resolved]
